FAERS Safety Report 7511963-X (Version None)
Quarter: 2011Q2

REPORT INFORMATION
  Report Type: 
  Country: None (occurrence: None)
  Receive Date: 20110531
  Receipt Date: 20110517
  Transmission Date: 20111010
  Serious: Yes (Disabling, Other)
  Sender: FDA-Public Use
  Company Number: PHHY2010US51594

PATIENT
  Sex: Female
  Weight: 63.492 kg

DRUGS (8)
  1. ACETAMINOPHEN [Suspect]
     Dosage: PM
  2. BACLOFEN [Concomitant]
     Dosage: UNK
  3. GABAPENTIN [Concomitant]
     Dosage: 3 PILLS A DAY
  4. VITAMIN D [Concomitant]
     Dosage: UNK
  5. EXTAVIA [Suspect]
     Indication: MULTIPLE SCLEROSIS
     Dosage: 0.25 MG, QOD
     Route: 058
     Dates: start: 20100616
  6. VALIUM [Concomitant]
     Dosage: 5 MG, UNK
  7. TRAMADOL HCL [Concomitant]
     Indication: PAIN
     Dosage: UNK
  8. NEXIUM [Concomitant]
     Dosage: UNK

REACTIONS (29)
  - BRONCHITIS [None]
  - BACK PAIN [None]
  - DIZZINESS [None]
  - OEDEMA PERIPHERAL [None]
  - NASOPHARYNGITIS [None]
  - BURNING SENSATION [None]
  - MOVEMENT DISORDER [None]
  - CANDIDIASIS [None]
  - PAIN IN EXTREMITY [None]
  - ASTHENIA [None]
  - INJECTION SITE ERYTHEMA [None]
  - MUSCLE SPASMS [None]
  - LARYNGITIS [None]
  - ARTHRALGIA [None]
  - PYREXIA [None]
  - URINARY INCONTINENCE [None]
  - TINNITUS [None]
  - GAIT DISTURBANCE [None]
  - INSOMNIA [None]
  - FATIGUE [None]
  - MUSCLE TIGHTNESS [None]
  - ABDOMINAL PAIN UPPER [None]
  - CHILLS [None]
  - MULTIPLE SCLEROSIS RELAPSE [None]
  - TREMOR [None]
  - SINUSITIS [None]
  - SINUS CONGESTION [None]
  - RESTLESSNESS [None]
  - PAIN [None]
